FAERS Safety Report 15947467 (Version 7)
Quarter: 2023Q4

REPORT INFORMATION
  Report Type: Spontaneous
  Country: US (occurrence: US)
  Receive Date: 20190211
  Receipt Date: 20231123
  Transmission Date: 20240110
  Serious: Yes (Other)
  Sender: FDA-Public Use
  Company Number: US-PFIZER INC-2019062481

PATIENT
  Age: 68 Year
  Sex: Male

DRUGS (2)
  1. BOSULIF [Suspect]
     Active Substance: BOSUTINIB MONOHYDRATE
     Indication: Chronic myeloid leukaemia
     Dosage: 400 MG, DAILY (4 TABLET EVERY DAY WITH FOOD, SWALLOWING WHOLE)
     Route: 048
  2. BOSULIF [Suspect]
     Active Substance: BOSUTINIB MONOHYDRATE
     Dosage: 100 MG

REACTIONS (10)
  - Guillain-Barre syndrome [Unknown]
  - Product dose omission issue [Unknown]
  - Liver function test increased [Unknown]
  - Malaise [Unknown]
  - Prostatomegaly [Unknown]
  - Leukocytosis [Unknown]
  - Anaemia [Unknown]
  - Zinc deficiency [Unknown]
  - Pelvic pain [Unknown]
  - Arthralgia [Unknown]

NARRATIVE: CASE EVENT DATE: 20191126
